FAERS Safety Report 5099819-6 (Version None)
Quarter: 2006Q3

REPORT INFORMATION
  Report Type: 
  Country: None (occurrence: None)
  Receive Date: 20060906
  Receipt Date: 20060822
  Transmission Date: 20061208
  Serious: Yes (Death)
  Sender: FDA-Public Use
  Company Number: 2006102272

PATIENT
  Age: 61 Year
  Sex: Male
  Weight: 57 kg

DRUGS (8)
  1. SUTENT [Suspect]
     Indication: METASTATIC RENAL CELL CARCINOMA
     Dosage: 50 MG (50 MG, INTERVAL:  EVERY DAY FOR 28 DAYS), ORAL
     Route: 048
     Dates: start: 20060731, end: 20060820
  2. MORPHINE SULFATE [Suspect]
     Indication: PAIN
     Dosage: 180 MG (30 MG, 1 IN 4 HR), ORAL
     Route: 048
     Dates: start: 20060707, end: 20060813
  3. GLUCOPHAGE [Concomitant]
  4. GEMFIBROZIL [Concomitant]
  5. ATORVASTATIN CALCIUM [Concomitant]
  6. MODURETIC 5-50 [Concomitant]
  7. DAFLON (DIOSMIN) [Concomitant]
  8. GLYBURIDE [Concomitant]

REACTIONS (6)
  - ABDOMINAL PAIN LOWER [None]
  - ANOREXIA [None]
  - FATIGUE [None]
  - METASTASES TO LUNG [None]
  - OEDEMA PERIPHERAL [None]
  - RESPIRATORY FAILURE [None]
